FAERS Safety Report 5019740-9 (Version None)
Quarter: 2006Q2

REPORT INFORMATION
  Report Type: 
  Country: None (occurrence: None)
  Receive Date: 20060601
  Receipt Date: 20060522
  Transmission Date: 20061013
  Serious: Yes (Hospitalization)
  Sender: FDA-Public Use
  Company Number: 2006067271

PATIENT
  Age: 79 Year
  Sex: Female

DRUGS (7)
  1. FLUCONAZOLE [Suspect]
     Indication: ORAL SOFT TISSUE DISORDER
     Dosage: 150 MG (150 MG, 1 IN 1 D), ORAL
     Route: 048
     Dates: start: 20060220, end: 20060227
  2. LAMOTRIGINE [Suspect]
     Indication: EPILEPSY
     Dosage: 200 MG (200 MG, 1 IN 1 D), ORAL
     Route: 048
     Dates: start: 20060110, end: 20060228
  3. PERINDOPRIL TERT-BUTYLAMINE (PERINDOPRIL) [Concomitant]
  4. PANTOPRAZOLE SEL DE NA ANHYDRE (PANTOPRAZOLE SODIUM) [Concomitant]
  5. PRAVASTATINE SEL DE NA (PRAVASTATIN SODIUM) [Concomitant]
  6. INDAPAMIDE [Concomitant]
  7. CLOBAZAM (CLOBAZAM) [Concomitant]

REACTIONS (6)
  - EOSINOPHILIA [None]
  - LYMPHADENOPATHY [None]
  - MOUTH ULCERATION [None]
  - RASH PAPULAR [None]
  - SWELLING [None]
  - TOXIC SKIN ERUPTION [None]
